FAERS Safety Report 10221327 (Version 1)
Quarter: 2014Q2

REPORT INFORMATION
  Report Type: Spontaneous
  Country: US (occurrence: US)
  Receive Date: 20140606
  Receipt Date: 20140606
  Transmission Date: 20141212
  Serious: No
  Sender: FDA-Public Use
  Company Number: US-GLAXOSMITHKLINE-A1072147A

PATIENT
  Age: 70 Year
  Sex: Female

DRUGS (2)
  1. BREO ELLIPTA [Suspect]
     Indication: OXYGEN SATURATION DECREASED
     Dosage: 1PUFF PER DAY
     Route: 055
     Dates: start: 20140501
  2. ADVAIR [Concomitant]

REACTIONS (4)
  - Dyspnoea [Unknown]
  - Insomnia [Unknown]
  - Overdose [Unknown]
  - Therapeutic response decreased [Unknown]
